FAERS Safety Report 10957833 (Version 1)
Quarter: 2015Q1

REPORT INFORMATION
  Report Type: Report from Study
  Country: US (occurrence: US)
  Receive Date: 20150326
  Receipt Date: 20150326
  Transmission Date: 20150721
  Serious: No
  Sender: FDA-Public Use
  Company Number: PHEH2015US005537

PATIENT
  Sex: Male

DRUGS (2)
  1. AZITHROMYCIN [Concomitant]
     Active Substance: AZITHROMYCIN ANHYDROUS
     Indication: PRODUCT USED FOR UNKNOWN INDICATION
     Route: 065
  2. TASIGNA [Suspect]
     Active Substance: NILOTINIB
     Indication: PRODUCT USED FOR UNKNOWN INDICATION
     Dosage: 300 MG, BID
     Route: 048

REACTIONS (5)
  - Fatigue [Unknown]
  - Nausea [Unknown]
  - Drug hypersensitivity [Unknown]
  - Abscess [Unknown]
  - Swelling [Unknown]
